FAERS Safety Report 12104833 (Version 2)
Quarter: 2016Q1

REPORT INFORMATION
  Report Type: Spontaneous
  Country: US (occurrence: US)
  Receive Date: 20160223
  Receipt Date: 20160302
  Transmission Date: 20160526
  Serious: No
  Sender: FDA-Public Use
  Company Number: US-PFIZER INC-2016098954

PATIENT
  Age: 67 Year
  Sex: Female

DRUGS (1)
  1. IBRANCE [Suspect]
     Active Substance: PALBOCICLIB
     Indication: BREAST CANCER METASTATIC
     Dosage: 125 MG, CYCLIC (1 CAPSULE DAILY 21 OUT OF 25 DAY)
     Route: 048
     Dates: start: 20160111, end: 201602

REACTIONS (7)
  - Migraine [Unknown]
  - Pruritus [Unknown]
  - Soft tissue injury [Unknown]
  - Abdominal discomfort [Unknown]
  - Rash [Unknown]
  - Fall [Unknown]
  - Vertigo [Unknown]
